FAERS Safety Report 8574920-0 (Version None)
Quarter: 2012Q3

REPORT INFORMATION
  Report Type: 
  Country: None (occurrence: None)
  Receive Date: 20120807
  Receipt Date: 20120614
  Transmission Date: 20120928
  Serious: Yes (Other)
  Sender: FDA-Public Use
  Company Number: US-009507513-2012SP033031

PATIENT

DRUGS (2)
  1. PEG-INTRON [Suspect]
     Indication: HEPATITIS C
     Dosage: UNK UNK
     Dates: start: 20020104, end: 20021213
  2. REBETOL [Suspect]
     Indication: HEPATITIS C
     Dosage: UNK UNK
     Dates: start: 20020104, end: 20021213

REACTIONS (2)
  - DIABETES MELLITUS [None]
  - NO THERAPEUTIC RESPONSE [None]
